FAERS Safety Report 15284812 (Version 2)
Quarter: 2019Q3

REPORT INFORMATION
  Report Type: Spontaneous
  Country: CA (occurrence: CA)
  Receive Date: 20180816
  Receipt Date: 20190927
  Transmission Date: 20191004
  Serious: Yes (Hospitalization, Disabling, Other)
  Sender: FDA-Public Use
  Company Number: CA-PFIZER INC-2018326979

PATIENT
  Age: 9 Year
  Sex: Male
  Weight: 51 kg

DRUGS (15)
  1. PREDNISONE. [Suspect]
     Active Substance: PREDNISONE
     Indication: ACUTE LYMPHOCYTIC LEUKAEMIA
     Dosage: 10-20 MG
     Route: 048
     Dates: start: 20140720, end: 20140824
  2. DOXORUBICIN HYDROCHLORIDE INJECTION [Concomitant]
     Active Substance: DOXORUBICIN HYDROCHLORIDE
     Dosage: 45-46 MG
     Route: 042
     Dates: start: 20140720, end: 20150127
  3. METHOTREXATE. [Concomitant]
     Active Substance: METHOTREXATE
     Dosage: 12 MG, UNK
     Dates: start: 20140805, end: 20160621
  4. PEG-L-ASPARAGINASE [Concomitant]
     Active Substance: PEGASPARGASE
     Dosage: 3750-3900 IU
     Route: 042
     Dates: start: 20140723, end: 20141202
  5. HYDROCORTISONE. [Suspect]
     Active Substance: HYDROCORTISONE
     Indication: ACUTE LYMPHOCYTIC LEUKAEMIA
     Dosage: 5-250 MG
     Route: 048
     Dates: start: 20140715, end: 20170224
  6. HYDROCORTISONE. [Suspect]
     Active Substance: HYDROCORTISONE
     Dosage: 15 MG, UNK
     Dates: start: 20140805, end: 20160621
  7. METHOTREXATE. [Concomitant]
     Active Substance: METHOTREXATE
     Dosage: 0.77-5.9 G
     Route: 042
     Dates: start: 20140827, end: 20140827
  8. DECADRON [Suspect]
     Active Substance: DEXAMETHASONE
     Indication: ACUTE LYMPHOCYTIC LEUKAEMIA
     Dosage: 2.5-13.5 MG, 2X/DAY
     Route: 048
     Dates: start: 20140923, end: 20161014
  9. CYTARABINE. [Concomitant]
     Active Substance: CYTARABINE
     Dosage: 40 MG, UNK
     Dates: start: 20140805, end: 20160621
  10. METHYLPREDNISOLONE SODIUM SUCCINATE. [Suspect]
     Active Substance: METHYLPREDNISOLONE SODIUM SUCCINATE
     Indication: ACUTE LYMPHOCYTIC LEUKAEMIA
     Dosage: 16 MG, 3X/DAY (EVERY 8 HOURS)L
     Route: 042
     Dates: start: 20140717, end: 20140817
  11. METHOTREXATE. [Concomitant]
     Active Substance: METHOTREXATE
     Dosage: 50-75 MG, INTRAVENOUS-INTRAMUSCULAR
     Dates: start: 20140727, end: 20160906
  12. VINCRISTINE SULFATE. [Concomitant]
     Active Substance: VINCRISTINE SULFATE
     Dosage: 1.1-1.3 MG
     Route: 042
     Dates: start: 20140720, end: 20160823
  13. CYTARABINE. [Concomitant]
     Active Substance: CYTARABINE
     Dosage: 40 MG, UNK
     Route: 037
     Dates: start: 20140718, end: 20140718
  14. METHOTREXATE. [Concomitant]
     Active Substance: METHOTREXATE
     Dosage: 12 MG, UNK
     Route: 037
     Dates: start: 20140818, end: 20140826
  15. MERCAPTOPURINE. [Concomitant]
     Active Substance: MERCAPTOPURINE
     Dosage: 62.5-137.5 MG
     Route: 048
     Dates: start: 20140826, end: 20160905

REACTIONS (2)
  - Hypoglycaemia [Recovered/Resolved]
  - Adrenal insufficiency [Recovered/Resolved]

NARRATIVE: CASE EVENT DATE: 2014
